FAERS Safety Report 7409994-3 (Version None)
Quarter: 2011Q2

REPORT INFORMATION
  Report Type: 
  Country: None (occurrence: None)
  Receive Date: 20110412
  Receipt Date: 20110404
  Transmission Date: 20111010
  Serious: Yes (Hospitalization, Other)
  Sender: FDA-Public Use
  Company Number: JP-PFIZER INC-2011074519

PATIENT
  Age: 73 Year
  Sex: Male

DRUGS (8)
  1. AMARYL [Concomitant]
     Dosage: UNK
     Dates: start: 20080225
  2. AMLODIPINE AND ATORVASTATIN [Suspect]
     Indication: HYPERTENSION
     Dosage: UNK
     Route: 048
     Dates: start: 20101129, end: 20110313
  3. VOGLIBOSE [Concomitant]
     Dosage: UNK
     Route: 048
  4. DIOVAN [Concomitant]
     Dosage: UNK
     Route: 048
  5. AMARYL [Concomitant]
     Dosage: UNK
     Route: 048
  6. AMLODIPINE AND ATORVASTATIN [Suspect]
     Indication: HYPERCHOLESTEROLAEMIA
  7. AMLODIPINE AND ATORVASTATIN [Suspect]
     Indication: ANGINA PECTORIS
  8. GLYCORAN [Concomitant]
     Dosage: UNK
     Route: 048
     Dates: start: 20080728

REACTIONS (1)
  - ATRIOVENTRICULAR BLOCK COMPLETE [None]
